FAERS Safety Report 15098983 (Version 1)
Quarter: 2018Q3

REPORT INFORMATION
  Report Type: Spontaneous
  Country: GB (occurrence: GB)
  Receive Date: 20180702
  Receipt Date: 20180702
  Transmission Date: 20181010
  Serious: Yes (Other)
  Sender: FDA-Public Use
  Company Number: GB-MYLANLABS-2018M1047101

PATIENT
  Age: 28 Year
  Sex: Female
  Weight: 60 kg

DRUGS (5)
  1. CILEST [Concomitant]
     Active Substance: ETHINYL ESTRADIOL\NORGESTIMATE
     Indication: PRODUCT USED FOR UNKNOWN INDICATION
  2. LEVETIRACETAM. [Suspect]
     Active Substance: LEVETIRACETAM
     Dosage: 250MG MORNING AND NIGHT.
     Route: 048
     Dates: start: 20180309, end: 20180315
  3. ESOMEPRAZOLE [Concomitant]
     Active Substance: ESOMEPRAZOLE
     Indication: PRODUCT USED FOR UNKNOWN INDICATION
  4. LEVETIRACETAM. [Suspect]
     Active Substance: LEVETIRACETAM
     Indication: MIGRAINE
     Dosage: AT NIGHT
     Route: 048
     Dates: start: 20180228
  5. LIZINNA [Concomitant]
     Indication: PRODUCT USED FOR UNKNOWN INDICATION

REACTIONS (12)
  - Condition aggravated [Unknown]
  - Joint laxity [Unknown]
  - Dizziness [Unknown]
  - Restless legs syndrome [Recovered/Resolved]
  - Feeling drunk [Unknown]
  - Suicidal ideation [Unknown]
  - Hypermobility syndrome [Unknown]
  - Muscular weakness [Unknown]
  - Mood swings [Unknown]
  - Anger [Unknown]
  - Oropharyngeal pain [Unknown]
  - Somnolence [Unknown]

NARRATIVE: CASE EVENT DATE: 20180228
